FAERS Safety Report 18406443 (Version 1)
Quarter: 2020Q4

REPORT INFORMATION
  Report Type: Spontaneous
  Country: GB (occurrence: GB)
  Receive Date: 20201020
  Receipt Date: 20201020
  Transmission Date: 20210114
  Serious: Yes (Hospitalization, Other)
  Sender: FDA-Public Use
  Company Number: GB-PFIZER INC-2020380559

PATIENT
  Age: 68 Year
  Sex: Female

DRUGS (3)
  1. METHOTREXATE SODIUM. [Suspect]
     Active Substance: METHOTREXATE SODIUM
     Indication: CENTRAL NERVOUS SYSTEM LYMPHOMA
     Dosage: UNK UNK, CYCLIC (HIGH DOSE) (DOSE-ATTENUATED COMBINATION CHEMOTHERAPY) (2 CYCLES)
  2. CYTARABINE. [Suspect]
     Active Substance: CYTARABINE
     Indication: CENTRAL NERVOUS SYSTEM LYMPHOMA
     Dosage: UNK UNK, CYCLIC (DOSE-ATTENUATED COMBINATION CHEMOTHERAPY) (2 CYCLES)
  3. RITUXIMAB. [Suspect]
     Active Substance: RITUXIMAB
     Indication: CENTRAL NERVOUS SYSTEM LYMPHOMA
     Dosage: UNK UNK, CYCLIC (DOSE-ATTENUATED COMBINATION CHEMOTHERAPY) (2 CYCLES)

REACTIONS (2)
  - Toxicity to various agents [Unknown]
  - Infection [Unknown]
